FAERS Safety Report 25823087 (Version 1)
Quarter: 2025Q3

REPORT INFORMATION
  Report Type: Spontaneous
  Country: US (occurrence: None)
  Receive Date: 20250918
  Receipt Date: 20250918
  Transmission Date: 20251021
  Serious: Yes (Death)
  Sender: FDA-CTU
  Company Number: None

PATIENT
  Age: 86 Year
  Sex: Male

DRUGS (10)
  1. INBRIJA [Suspect]
     Active Substance: LEVODOPA
     Indication: Parkinson^s disease
     Route: 048
     Dates: start: 20241001
  2. ALPRAZOLAM [Concomitant]
     Active Substance: ALPRAZOLAM
  3. LOSARTAN [Concomitant]
     Active Substance: LOSARTAN
  4. FLUDROCORTISONE [Concomitant]
     Active Substance: FLUDROCORTISONE
  5. VITAMIN D3 [Concomitant]
     Active Substance: CHOLECALCIFEROL
  6. DOCUSATE SODIUM [Concomitant]
     Active Substance: DOCUSATE SODIUM
  7. CARBIDOPA\LEVODOPA [Concomitant]
     Active Substance: CARBIDOPA\LEVODOPA
  8. GABAPENTIN [Concomitant]
     Active Substance: GABAPENTIN
  9. DROXIDOPA [Concomitant]
     Active Substance: DROXIDOPA
  10. FINASTERIDE [Concomitant]
     Active Substance: FINASTERIDE

REACTIONS (3)
  - Throat tightness [None]
  - Eye movement disorder [None]
  - Loss of consciousness [None]

NARRATIVE: CASE EVENT DATE: 20250914
